FAERS Safety Report 17958462 (Version 1)
Quarter: 2020Q2

REPORT INFORMATION
  Report Type: Spontaneous
  Country: US (occurrence: US)
  Receive Date: 20200629
  Receipt Date: 20200629
  Transmission Date: 20200714
  Serious: Yes (Death, Hospitalization, Other)
  Sender: FDA-Public Use
  Company Number: US-HIKMA PHARMACEUTICALS USA INC.-US-H14001-20-03052

PATIENT
  Age: 4 Week
  Sex: Female

DRUGS (1)
  1. METHAMPHETAMINE HYDROCHLORIDE. [Suspect]
     Active Substance: METHAMPHETAMINE HYDROCHLORIDE
     Indication: PRODUCT USED FOR UNKNOWN INDICATION
     Route: 064

REACTIONS (3)
  - Hypoxic-ischaemic encephalopathy [Fatal]
  - Foetal exposure during pregnancy [Recovered/Resolved]
  - Foetal heart rate deceleration abnormality [Recovered/Resolved]
